FAERS Safety Report 5752616-8 (Version None)
Quarter: 2008Q2

REPORT INFORMATION
  Report Type: 
  Country: None (occurrence: None)
  Receive Date: 20080527
  Receipt Date: 20080527
  Transmission Date: 20081010
  Serious: Yes (Hospitalization)
  Sender: FDA-Public Use
  Company Number: None

PATIENT
  Age: 81 Year
  Sex: Female

DRUGS (6)
  1. ALBUTEROL [Suspect]
     Indication: BRONCHOSPASM
     Dosage: 5ML Q4H PO
     Route: 048
     Dates: start: 20080229, end: 20080305
  2. IPRATROPIUM BROMIDE [Concomitant]
  3. ACETYLCYSTEINE [Concomitant]
  4. LEVAQUIN [Concomitant]
  5. ZOSYN [Concomitant]
  6. VANCOMYCIN [Concomitant]

REACTIONS (11)
  - ATRIAL FIBRILLATION [None]
  - ATRIAL FLUTTER [None]
  - BACTERIA BLOOD IDENTIFIED [None]
  - CULTURE URINE POSITIVE [None]
  - HYPOVOLAEMIA [None]
  - KLEBSIELLA INFECTION [None]
  - PRODUCTIVE COUGH [None]
  - PULMONARY EMBOLISM [None]
  - PYREXIA [None]
  - RESPIRATORY DISORDER [None]
  - TACHYCARDIA [None]
